FAERS Safety Report 7569877-5 (Version None)
Quarter: 2011Q2

REPORT INFORMATION
  Report Type: 
  Country: None (occurrence: None)
  Receive Date: 20110622
  Receipt Date: 20110622
  Transmission Date: 20111010
  Serious: Yes (Death)
  Sender: FDA-Public Use
  Company Number: None

PATIENT
  Age: 79 Year
  Sex: Male

DRUGS (6)
  1. FUROSEMIDE [Concomitant]
  2. PREDNISONE [Concomitant]
  3. EPOGEN [Concomitant]
  4. REVLIMID [Suspect]
     Indication: MYELODYSPLASTIC SYNDROME
     Dosage: 5MG DAILY ORALLY
     Route: 048
     Dates: start: 20100401, end: 20100601
  5. METOPROLOL TARTRATE [Concomitant]
  6. CIPROFLOXACIN [Concomitant]

REACTIONS (1)
  - NO THERAPEUTIC RESPONSE [None]
